FAERS Safety Report 10431559 (Version 1)
Quarter: 2014Q3

REPORT INFORMATION
  Report Type: Spontaneous
  Country: US (occurrence: None)
  Receive Date: 20140903
  Receipt Date: 20140903
  Transmission Date: 20150326
  Serious: Yes (Life-Threatening, Hospitalization)
  Sender: FDA-Public Use
  Company Number: IMP_07882_2014

PATIENT
  Age: 65 Year
  Sex: Male

DRUGS (4)
  1. NSAID^S [Concomitant]
     Active Substance: UNSPECIFIED INGREDIENT
  2. THIAZIDE [Concomitant]
     Active Substance: UNSPECIFIED INGREDIENT
  3. METFORMIN [Suspect]
     Active Substance: METFORMIN HYDROCHLORIDE
     Indication: TYPE 2 DIABETES MELLITUS
     Dosage: DF
  4. ACE INHIBITORS [Concomitant]
     Active Substance: UNSPECIFIED INGREDIENT

REACTIONS (8)
  - Vomiting [None]
  - Cardiac arrest [None]
  - Toxicity to various agents [None]
  - Nausea [None]
  - Acidosis [None]
  - Hyperkalaemia [None]
  - Circulatory collapse [None]
  - Haemodialysis [None]
